FAERS Safety Report 14515109 (Version 5)
Quarter: 2018Q2

REPORT INFORMATION
  Report Type: Report from Study
  Country: US (occurrence: US)
  Receive Date: 20180210
  Receipt Date: 20180521
  Transmission Date: 20180711
  Serious: Yes (Death)
  Sender: FDA-Public Use
  Company Number: PHEH2018US005338

PATIENT
  Age: 58 Year
  Sex: Female
  Weight: 67.4 kg

DRUGS (7)
  1. TAFINLAR [Suspect]
     Active Substance: DABRAFENIB MESYLATE
     Indication: METASTATIC MALIGNANT MELANOMA
     Dosage: 75 MG, PRN
     Route: 048
     Dates: start: 20170120
  2. PROSCAR [Concomitant]
     Active Substance: FINASTERIDE
     Indication: PRODUCT USED FOR UNKNOWN INDICATION
     Dosage: 1 DF, QD
     Route: 048
     Dates: start: 20161129
  3. SILVADENE [Concomitant]
     Active Substance: SILVER SULFADIAZINE
     Indication: PRODUCT USED FOR UNKNOWN INDICATION
     Dosage: 2 OT, QD
     Route: 061
     Dates: start: 20170127
  4. OXYCONTIN [Concomitant]
     Active Substance: OXYCODONE HYDROCHLORIDE
     Indication: BRAIN NEOPLASM MALIGNANT
     Route: 065
  5. ESTRACE [Concomitant]
     Active Substance: ESTRADIOL
     Indication: PRODUCT USED FOR UNKNOWN INDICATION
     Dosage: 2 DF, BID
     Route: 048
     Dates: start: 20161024
  6. SPIRONOLACTONE. [Concomitant]
     Active Substance: SPIRONOLACTONE
     Indication: PRODUCT USED FOR UNKNOWN INDICATION
     Dosage: 1 DF, BID
     Route: 048
     Dates: start: 20161129
  7. MEKINIST [Suspect]
     Active Substance: TRAMETINIB DIMETHYL SULFOXIDE
     Indication: METASTATIC MALIGNANT MELANOMA
     Dosage: 2 MG, PRN
     Route: 048
     Dates: start: 20170120

REACTIONS (10)
  - Pain [Unknown]
  - Death [Fatal]
  - Musculoskeletal pain [Recovering/Resolving]
  - Groin pain [Recovering/Resolving]
  - Skin hyperpigmentation [Unknown]
  - Nausea [Unknown]
  - Dyspnoea [Not Recovered/Not Resolved]
  - Product use issue [Unknown]
  - Back pain [Not Recovered/Not Resolved]
  - Vomiting [Unknown]

NARRATIVE: CASE EVENT DATE: 20170120
